FAERS Safety Report 5381906-6 (Version None)
Quarter: 2007Q3

REPORT INFORMATION
  Report Type: 
  Country: None (occurrence: None)
  Receive Date: 20070709
  Receipt Date: 20070627
  Transmission Date: 20080115
  Serious: Yes (Other)
  Sender: FDA-Public Use
  Company Number: GB-ASTRAZENECA-2007GB01347

PATIENT
  Age: 575 Month
  Sex: Female

DRUGS (3)
  1. ARIMIDEX [Suspect]
     Indication: BREAST CANCER
     Route: 048
     Dates: start: 20051001
  2. DIAZEPAM [Concomitant]
  3. PROZAC [Concomitant]

REACTIONS (5)
  - ARTHRITIS [None]
  - DYSPNOEA [None]
  - FATIGUE [None]
  - FOOT FRACTURE [None]
  - OVERDOSE [None]
